FAERS Safety Report 5252932-2 (Version None)
Quarter: 2007Q1

REPORT INFORMATION
  Report Type: 
  Country: None (occurrence: None)
  Receive Date: 20070301
  Receipt Date: 20070220
  Transmission Date: 20070707
  Serious: Yes (Hospitalization, Other)
  Sender: FDA-Public Use
  Company Number: US-BRISTOL-MYERS SQUIBB COMPANY-13685300

PATIENT
  Age: 69 Year
  Sex: Female

DRUGS (11)
  1. CYTOXAN [Suspect]
     Indication: BREAST CANCER
     Route: 042
     Dates: start: 20061218, end: 20061218
  2. ADRIAMYCIN PFS [Suspect]
     Indication: BREAST CANCER
     Route: 042
     Dates: start: 20061218, end: 20061218
  3. BEVACIZUMAB [Suspect]
     Indication: BREAST CANCER
     Route: 042
     Dates: start: 20061218, end: 20061218
  4. NEULASTA [Suspect]
     Route: 058
     Dates: start: 20061219, end: 20061219
  5. ELAVIL [Concomitant]
  6. SYNTHROID [Concomitant]
  7. XANAX [Concomitant]
  8. ZANTAC [Concomitant]
  9. LOPRESSOR [Concomitant]
  10. ZOFRAN [Concomitant]
  11. ZOCOR [Concomitant]

REACTIONS (16)
  - ANAEMIA [None]
  - BLOOD SODIUM DECREASED [None]
  - BONE MARROW FAILURE [None]
  - CARDIOMEGALY [None]
  - DEHYDRATION [None]
  - FEBRILE NEUTROPENIA [None]
  - HEADACHE [None]
  - HYPOXIA [None]
  - INFECTION [None]
  - MENINGITIS [None]
  - NAUSEA [None]
  - NEUTROPHIL PERCENTAGE DECREASED [None]
  - SUBDURAL HAEMATOMA [None]
  - THROMBOCYTOPENIA [None]
  - VOMITING [None]
  - WHITE BLOOD CELL COUNT DECREASED [None]
